FAERS Safety Report 4557576-3 (Version None)
Quarter: 2005Q1

REPORT INFORMATION
  Report Type: 
  Country: None (occurrence: None)
  Receive Date: 20050120
  Receipt Date: 20041104
  Transmission Date: 20050727
  Serious: Yes (Hospitalization, Disabling)
  Sender: FDA-Public Use
  Company Number: DE-MERCK-0411DEU00094

PATIENT
  Age: 58 Year
  Sex: Male
  Weight: 77 kg

DRUGS (3)
  1. VIOXX [Suspect]
     Indication: OSTEOARTHRITIS
     Route: 048
     Dates: start: 20020404, end: 20041011
  2. ASPIRIN [Concomitant]
     Indication: ATHEROSCLEROSIS
     Route: 048
     Dates: start: 20000113
  3. LEVOTHYROXINE SODIUM [Concomitant]
     Indication: GOITRE
     Route: 048
     Dates: start: 20020101

REACTIONS (2)
  - ADAMS-STOKES SYNDROME [None]
  - ATRIOVENTRICULAR BLOCK SECOND DEGREE [None]
